FAERS Safety Report 8885717 (Version 1)
Quarter: 2012Q4

REPORT INFORMATION
  Report Type: 
  Country: US (occurrence: US)
  Receive Date: 20121102
  Receipt Date: 20121102
  Transmission Date: 20130627
  Serious: Yes (Other)
  Sender: FDA-Public Use
  Company Number: US-PFIZER INC-2012271524

PATIENT
  Age: 69 Year
  Sex: Female
  Weight: 69.84 kg

DRUGS (3)
  1. LYRICA [Suspect]
     Indication: FIBROMYALGIA
     Dosage: 50 mg, 3x/day
     Dates: start: 20121001
  2. FLEXERIL [Concomitant]
     Indication: MUSCLE DISORDER
     Dosage: UNK, 3x/day
  3. FLEXERIL [Concomitant]
     Indication: JOINT DISORDER

REACTIONS (6)
  - Impaired driving ability [Recovered/Resolved]
  - Activities of daily living impaired [Recovered/Resolved]
  - Breast pain [Recovered/Resolved]
  - Migraine [Recovered/Resolved]
  - Neck pain [Recovered/Resolved]
  - Weight increased [Unknown]
